FAERS Safety Report 24756039 (Version 1)
Quarter: 2024Q4

REPORT INFORMATION
  Report Type: Spontaneous
  Country: FR (occurrence: FR)
  Receive Date: 20241219
  Receipt Date: 20241219
  Transmission Date: 20250115
  Serious: Yes (Hospitalization, Other)
  Sender: AUROBINDO
  Company Number: FR-AFSSAPS-CF2024000586

PATIENT
  Age: 54 Year
  Sex: Female

DRUGS (5)
  1. ARIPIPRAZOLE [Suspect]
     Active Substance: ARIPIPRAZOLE
     Indication: Psychotic disorder
     Dosage: 10 MILLIGRAM, ONCE A DAY
     Route: 048
     Dates: start: 20241115, end: 20241120
  2. CEFTRIAXONE [Suspect]
     Active Substance: CEFTRIAXONE
     Indication: Escherichia pyelonephritis
     Dosage: 1 GRAM, ONCE A DAY
     Route: 030
     Dates: start: 20241113, end: 20241119
  3. LOXAPINE [Suspect]
     Active Substance: LOXAPINE
     Indication: Psychotic disorder
     Dosage: 250 MILLIGRAM, ONCE A DAY
     Route: 030
     Dates: start: 20241023, end: 20241120
  4. TROPATEPINE HYDROCHLORIDE [Suspect]
     Active Substance: TROPATEPINE HYDROCHLORIDE
     Indication: Psychotic disorder
     Dosage: 10 MILLIGRAM, ONCE A DAY
     Route: 048
     Dates: start: 20241105, end: 20241120
  5. HALOPERIDOL DECANOATE [Suspect]
     Active Substance: HALOPERIDOL DECANOATE
     Indication: Psychotic disorder
     Dosage: 3 DOSAGE FORM
     Route: 030
     Dates: start: 20241106, end: 20241120

REACTIONS (2)
  - Hepatic cytolysis [Recovering/Resolving]
  - Cholestasis [Recovering/Resolving]

NARRATIVE: CASE EVENT DATE: 20241121
